FAERS Safety Report 17624261 (Version 1)
Quarter: 2020Q2

REPORT INFORMATION
  Report Type: Other
  Country: SE (occurrence: SE)
  Receive Date: 20200403
  Receipt Date: 20200403
  Transmission Date: 20200713
  Serious: Yes (Other)
  Sender: FDA-Public Use
  Company Number: SE-HQ SPECIALTY-SE-2020INT000030

PATIENT
  Age: 6 Year
  Sex: Male

DRUGS (3)
  1. DEXMEDETOMIDINE HYDROCHLORIDE. [Suspect]
     Active Substance: DEXMEDETOMIDINE HYDROCHLORIDE
     Dosage: 2 ?G/KG, UNK
     Route: 045
     Dates: start: 20200226, end: 20200226
  2. DEXMEDETOMIDINE HYDROCHLORIDE. [Suspect]
     Active Substance: DEXMEDETOMIDINE HYDROCHLORIDE
     Dosage: 2 ?G/KG, UNK
     Route: 045
     Dates: start: 20200226, end: 20200226
  3. DEXMEDETOMIDINE HYDROCHLORIDE. [Suspect]
     Active Substance: DEXMEDETOMIDINE HYDROCHLORIDE
     Indication: SEDATIVE THERAPY
     Dosage: 4 ?G/KG, UNK
     Route: 045
     Dates: start: 20200226, end: 20200226

REACTIONS (3)
  - Product administered to patient of inappropriate age [Unknown]
  - Somnolence [Recovering/Resolving]
  - Product use issue [Unknown]

NARRATIVE: CASE EVENT DATE: 20200226
